FAERS Safety Report 6188438-6 (Version None)
Quarter: 2009Q2

REPORT INFORMATION
  Report Type: 
  Country: None (occurrence: None)
  Receive Date: 20090513
  Receipt Date: 20090506
  Transmission Date: 20091009
  Serious: Yes (Other)
  Sender: FDA-Public Use
  Company Number: US-JNJFOC-20090502071

PATIENT
  Sex: Female
  Weight: 100.7 kg

DRUGS (7)
  1. DURAGESIC-100 [Suspect]
     Indication: BACK INJURY
     Dosage: 100 UG/HR PLUS 50 UG/HR PATCH
     Route: 062
  2. UNKNOWN MEDICATION [Concomitant]
     Indication: HYPERTENSION
     Route: 065
  3. UNKNOWN MEDICATION [Concomitant]
     Indication: HYPERHIDROSIS
     Route: 065
  4. UNKNOWN MEDICATION [Concomitant]
     Indication: JOINT INJURY
     Route: 065
  5. UNKNOWN MEDICATION [Concomitant]
     Indication: CONCUSSION
     Route: 065
  6. UNKNOWN MEDICATION [Concomitant]
     Indication: ROAD TRAFFIC ACCIDENT
     Route: 065
  7. UNKNOWN MEDICATION [Concomitant]
     Indication: BACK INJURY
     Route: 065

REACTIONS (5)
  - APPLICATION SITE IRRITATION [None]
  - DIABETES MELLITUS [None]
  - DRUG PRESCRIBING ERROR [None]
  - HYPERHIDROSIS [None]
  - WRONG TECHNIQUE IN DRUG USAGE PROCESS [None]
